FAERS Safety Report 8979331 (Version 2)
Quarter: 2013Q1

REPORT INFORMATION
  Report Type: Spontaneous
  Country: ES (occurrence: ES)
  Receive Date: 20121221
  Receipt Date: 20130326
  Transmission Date: 20140127
  Serious: Yes (Life-Threatening, Hospitalization, Other)
  Sender: FDA-Public Use
  Company Number: ES-ROCHE-1171846

PATIENT
  Age: 58 Year
  Sex: Female
  Weight: 65 kg

DRUGS (4)
  1. ROACTEMRA [Suspect]
     Indication: RHEUMATOID ARTHRITIS
     Route: 042
     Dates: start: 20120811
  2. ROACTEMRA [Suspect]
     Route: 042
     Dates: start: 20121120
  3. ACETYLSALICYLIC ACID [Concomitant]
     Indication: OSTEOARTHRITIS
     Route: 065
  4. ACETYLSALICYLIC ACID [Concomitant]
     Indication: JOINT SWELLING

REACTIONS (4)
  - Ear infection [Recovered/Resolved]
  - Meningitis [Recovered/Resolved]
  - Pyrexia [Not Recovered/Not Resolved]
  - Coma [Recovered/Resolved]
